FAERS Safety Report 10582616 (Version 1)
Quarter: 2014Q4

REPORT INFORMATION
  Report Type: Spontaneous
  Country: US (occurrence: US)
  Receive Date: 20141113
  Receipt Date: 20141113
  Transmission Date: 20150529
  Serious: No
  Sender: FDA-Public Use
  Company Number: US-ENDO PHARMACEUTICALS INC.-VALS20140044

PATIENT
  Age: 84 Year
  Sex: Female

DRUGS (1)
  1. VALSTAR [Suspect]
     Active Substance: VALRUBICIN
     Indication: PRODUCT USED FOR UNKNOWN INDICATION
     Dosage: UNK
     Route: 043

REACTIONS (4)
  - Urge incontinence [Recovered/Resolved]
  - Feeling hot [Recovered/Resolved]
  - Abdominal pain [Recovered/Resolved]
  - Bladder instillation procedure [Recovered/Resolved]
